FAERS Safety Report 6867802-3 (Version None)
Quarter: 2010Q3

REPORT INFORMATION
  Report Type: 
  Country: None (occurrence: None)
  Receive Date: 20100722
  Receipt Date: 20100715
  Transmission Date: 20110219
  Serious: Yes (Death, Other)
  Sender: FDA-Public Use
  Company Number: US-PURDUE-USA-2010-0045150

PATIENT
  Age: 32 Year

DRUGS (1)
  1. OXYCONTIN [Suspect]
     Indication: DRUG ABUSE
     Route: 048

REACTIONS (3)
  - DEATH [None]
  - DRUG ABUSE [None]
  - DRUG DEPENDENCE [None]
